FAERS Safety Report 8247172 (Version 3)
Quarter: 2012Q4

REPORT INFORMATION
  Report Type: Spontaneous
  Country: US (occurrence: None)
  Receive Date: 20111110
  Receipt Date: 20121022
  Transmission Date: 20130627
  Serious: Yes (Other)
  Sender: FDA-Public Use
  Company Number: JPI-P-017829

PATIENT
  Age: 68 Year
  Sex: Female
  Weight: 68.04 kg

DRUGS (2)
  1. XYREM [Suspect]
     Indication: FIBROMYALGIA
     Dosage: ORAL, 12 GM (4 GM, 3 IN 1 D), ORAL
     Route: 048
     Dates: start: 20040415
  2. XYREM [Suspect]
     Indication: FIBROMYALGIA
     Dosage: ORAL, 12 GM (4 GM, 3 IN 1 D), ORAL
     Route: 048

REACTIONS (1)
  - SURGERY [None]
